FAERS Safety Report 9899007 (Version 3)
Quarter: 2014Q1

REPORT INFORMATION
  Report Type: Report from Study
  Country: IT (occurrence: IT)
  Receive Date: 20140214
  Receipt Date: 20140226
  Transmission Date: 20141002
  Serious: Yes (Other)
  Sender: FDA-Public Use
  Company Number: IT-GLAXOSMITHKLINE-B0969098A

PATIENT
  Age: 51 Year
  Sex: Male
  Weight: 94 kg

DRUGS (5)
  1. PAZOPANIB [Suspect]
     Indication: METASTATIC RENAL CELL CARCINOMA
     Dates: start: 20130618
  2. AMLODIPINE [Concomitant]
     Indication: HYPERTENSION
  3. SIMVASTATIN [Concomitant]
     Indication: HYPERCHOLESTEROLAEMIA
  4. TRIATEC [Concomitant]
  5. EUTIROX [Concomitant]
     Indication: HYPERTHYROIDISM
     Route: 048

REACTIONS (4)
  - Nephrotic syndrome [Not Recovered/Not Resolved]
  - Renal impairment [Unknown]
  - Proteinuria [Unknown]
  - Hypertension [Unknown]
